FAERS Safety Report 4274753-X (Version None)
Quarter: 2004Q1

REPORT INFORMATION
  Report Type: 
  Country: None (occurrence: None)
  Receive Date: 20040120
  Receipt Date: 20040120
  Transmission Date: 20041129
  Serious: Yes (Hospitalization)
  Sender: FDA-Public Use
  Company Number: None

PATIENT
  Age: 73 Year
  Sex: Female
  Weight: 60 kg

DRUGS (10)
  1. GATIFLOXACIN [Suspect]
     Indication: BRONCHITIS ACUTE
     Dosage: 400 MG PO Q 24 H
     Route: 048
     Dates: start: 20040109, end: 20040110
  2. GLYBURIDE [Concomitant]
  3. METFORMIN HCL [Concomitant]
  4. AVANDIA [Concomitant]
  5. CARDIZEM [Concomitant]
  6. WARFARIN SODIUM [Concomitant]
  7. ATROVASTATIN [Concomitant]
  8. LISINOPRIL [Concomitant]
  9. CLONIDINE [Concomitant]
  10. FUROSEMIDE [Concomitant]

REACTIONS (2)
  - DIZZINESS [None]
  - HYPOGLYCAEMIA [None]
